FAERS Safety Report 24978583 (Version 2)
Quarter: 2025Q1

REPORT INFORMATION
  Report Type: Spontaneous
  Country: US (occurrence: US)
  Receive Date: 20250218
  Receipt Date: 20250226
  Transmission Date: 20250409
  Serious: Yes (Death, Other)
  Sender: AUROBINDO
  Company Number: US-MLMSERVICE-20250127-PI377680-00218-3

PATIENT
  Age: 99 Year
  Sex: Male

DRUGS (1)
  1. METHOTREXATE [Suspect]
     Active Substance: METHOTREXATE
     Indication: Rheumatoid arthritis
     Dosage: 7.5 MILLIGRAM, EVERY WEEK
     Route: 065
     Dates: start: 20221214, end: 2023

REACTIONS (3)
  - Cutaneous T-cell lymphoma [Fatal]
  - Fatigue [Unknown]
  - Appetite disorder [Unknown]

NARRATIVE: CASE EVENT DATE: 20230501
